FAERS Safety Report 8969573 (Version 1)
Quarter: 2012Q4

REPORT INFORMATION
  Report Type: 
  Country: US (occurrence: US)
  Receive Date: 20121218
  Receipt Date: 20121218
  Transmission Date: 20130627
  Serious: No
  Sender: FDA-Public Use
  Company Number: US-BRISTOL-MYERS SQUIBB COMPANY-16603581

PATIENT
  Age: 56 Year
  Sex: Female
  Weight: 113.38 kg

DRUGS (1)
  1. ABILIFY [Suspect]
     Indication: SCHIZOPHRENIA
     Dosage: Reduced to 20mg
Prescription:7035807
     Dates: start: 2000

REACTIONS (2)
  - Increased appetite [Recovering/Resolving]
  - Fatigue [Recovering/Resolving]
